FAERS Safety Report 7488674-2 (Version None)
Quarter: 2011Q2

REPORT INFORMATION
  Report Type: 
  Country: None (occurrence: None)
  Receive Date: 20110518
  Receipt Date: 20110512
  Transmission Date: 20111010
  Serious: Yes (Death, Hospitalization)
  Sender: FDA-Public Use
  Company Number: B0714739A

PATIENT
  Sex: Male

DRUGS (5)
  1. MARAVIROC [Suspect]
     Indication: HIV INFECTION
     Dates: start: 20051024, end: 20060902
  2. REYATAZ [Concomitant]
     Route: 048
     Dates: start: 20051024, end: 20081221
  3. ISENTRESS [Concomitant]
     Route: 048
     Dates: start: 20080131, end: 20081221
  4. CELSENTRI [Concomitant]
     Route: 048
     Dates: start: 20080131, end: 20081221
  5. TRUVADA [Concomitant]
     Route: 048
     Dates: start: 20080508, end: 20081221

REACTIONS (1)
  - LUNG CANCER METASTATIC [None]
